FAERS Safety Report 10022493 (Version 1)
Quarter: 2014Q1

REPORT INFORMATION
  Report Type: Spontaneous
  Country: IT (occurrence: IT)
  Receive Date: 20140319
  Receipt Date: 20140319
  Transmission Date: 20141002
  Serious: Yes (Other)
  Sender: FDA-Public Use
  Company Number: IT-WATSON-2014-05036

PATIENT
  Age: 82 Year
  Sex: Female

DRUGS (5)
  1. ZOLPIDEM ACTAVIS [Suspect]
     Indication: PRODUCT USED FOR UNKNOWN INDICATION
     Dosage: UNK
     Route: 048
     Dates: start: 20140213, end: 20140213
  2. AMLODIPINE BESYLATE [Concomitant]
     Indication: HYPERTENSION
     Dosage: UNK
     Route: 048
  3. RAMIPRIL [Concomitant]
     Indication: HYPERTENSION
     Dosage: UNK
     Route: 065
  4. LUVION                             /00252501/ [Concomitant]
     Indication: HYPERTENSION
     Route: 065
  5. LASIX                              /00032601/ [Concomitant]
     Indication: HYPERTENSION
     Route: 065

REACTIONS (4)
  - Sopor [Recovered/Resolved]
  - Confusional state [Recovered/Resolved]
  - Disorientation [Recovered/Resolved]
  - Drug abuse [Recovered/Resolved]
